FAERS Safety Report 8812182 (Version 2)
Quarter: 2012Q4

REPORT INFORMATION
  Report Type: Spontaneous
  Country: DK (occurrence: None)
  Receive Date: 20120925
  Receipt Date: 20121002
  Transmission Date: 20130627
  Serious: Yes (Death, Life-Threatening, Hospitalization)
  Sender: FDA-Public Use
  Company Number: 2012MA011488

PATIENT
  Age: 61 Year
  Sex: Female

DRUGS (4)
  1. GEMCITABINE HYDROCHLORIDE [Suspect]
     Indication: OVARIAN CANCER
     Route: 042
     Dates: start: 20120713, end: 20120727
  2. CORTANCYL [Concomitant]
  3. SYMBICORT [Concomitant]
  4. OXYNORM [Concomitant]

REACTIONS (2)
  - Cardiac failure acute [None]
  - Lymphangitis [None]
